FAERS Safety Report 9234116 (Version 2)
Quarter: 2013Q2

REPORT INFORMATION
  Report Type: Spontaneous
  Country: US (occurrence: None)
  Receive Date: 20121031
  Receipt Date: 20130107
  Transmission Date: 20140414
  Serious: Yes (Other)
  Sender: FDA-Public Use
  Company Number: PHEH2012US015478

PATIENT
  Age: 60 Year
  Sex: Female
  Weight: 43 kg

DRUGS (2)
  1. GILENYA [Suspect]
     Indication: MULTIPLE SCLEROSIS
     Route: 048
     Dates: start: 20120726
  2. BACLOFEN [Concomitant]

REACTIONS (6)
  - Gait disturbance [None]
  - Heart rate abnormal [None]
  - Visual impairment [None]
  - Fatigue [None]
  - Headache [None]
  - Depression [None]
